FAERS Safety Report 20983475 (Version 1)
Quarter: 2022Q2

REPORT INFORMATION
  Report Type: Spontaneous
  Country: IT (occurrence: IT)
  Receive Date: 20220620
  Receipt Date: 20220620
  Transmission Date: 20220721
  Serious: Yes (Hospitalization)
  Sender: FDA-Public Use
  Company Number: IT-PURDUE PHARMA-USA-2022-0291579

PATIENT
  Age: 62 Year
  Sex: Male

DRUGS (11)
  1. OXYCODONE HYDROCHLORIDE [Suspect]
     Active Substance: OXYCODONE HYDROCHLORIDE
     Indication: Pain
     Dosage: 10 MG, BID
     Route: 048
     Dates: start: 20210616
  2. OXYCODONE HYDROCHLORIDE [Suspect]
     Active Substance: OXYCODONE HYDROCHLORIDE
     Indication: Pain
     Dosage: 3 MG, TID
     Route: 065
     Dates: start: 20210616
  3. OXYCODONE HYDROCHLORIDE [Suspect]
     Active Substance: OXYCODONE HYDROCHLORIDE
     Indication: Postoperative analgesia
     Dosage: 20 MG, DAILY, DAY
     Route: 065
     Dates: start: 20210616
  4. TRAMADOL [Suspect]
     Active Substance: TRAMADOL
     Indication: Postoperative analgesia
     Dosage: 200 MG, DAILY, DAY
     Route: 051
     Dates: start: 20210611, end: 20210615
  5. SUFENTANIL [Suspect]
     Active Substance: SUFENTANIL
     Indication: Postoperative analgesia
     Dosage: 1 ML/HR, (UG/ML, ML/H)
     Route: 051
     Dates: start: 20210611, end: 20210615
  6. OXYCODONE [Suspect]
     Active Substance: OXYCODONE
     Indication: Postoperative analgesia
     Dosage: 9 MG, DAILY
     Route: 051
     Dates: start: 20210616
  7. ROPIVACAINE [Concomitant]
     Active Substance: ROPIVACAINE
     Indication: Postoperative analgesia
     Dosage: 0.125 MG/ML, UNK
     Route: 051
     Dates: start: 20210611, end: 20210615
  8. ACETAMINOPHEN\OXYCODONE HYDROCHLORIDE [Concomitant]
     Active Substance: ACETAMINOPHEN\OXYCODONE HYDROCHLORIDE
     Indication: Product used for unknown indication
     Dosage: 1 DF, UNK
     Route: 065
  9. ACETAMINOPHEN [Concomitant]
     Active Substance: ACETAMINOPHEN
     Indication: Pain
     Dosage: 1000 MG, UNK
     Route: 048
  10. OXYCODONE [Concomitant]
     Active Substance: OXYCODONE
     Indication: Product used for unknown indication
     Dosage: 10 MG, BID
     Route: 065
  11. OXYCODONE [Concomitant]
     Active Substance: OXYCODONE
     Dosage: 3 MG, TID
     Route: 042

REACTIONS (4)
  - Condition aggravated [Unknown]
  - Constipation [Recovered/Resolved]
  - Drug ineffective [Unknown]
  - Urticaria [Unknown]
